FAERS Safety Report 8968294 (Version 1)
Quarter: 2012Q4

REPORT INFORMATION
  Report Type: 
  Country: US (occurrence: US)
  Receive Date: 20121217
  Receipt Date: 20121217
  Transmission Date: 20130627
  Serious: Yes (Hospitalization)
  Sender: FDA-Public Use
  Company Number: US-ROCHE-1169101

PATIENT
  Age: 72 Year
  Sex: Female

DRUGS (4)
  1. XELODA [Suspect]
     Indication: HEPATIC NEOPLASM MALIGNANT
     Route: 065
  2. GLUCOSE OXIDASE [Interacting]
     Indication: DRY MOUTH
     Route: 065
  3. LACTOPEROXIDASE BOVINE\LYSOZYME HYDROCHLORIDE [Interacting]
     Indication: DRY MOUTH
     Route: 065
  4. LYSOZYME HYDROCHLORIDE [Interacting]
     Indication: DRY MOUTH
     Route: 065

REACTIONS (7)
  - Pyrexia [Not Recovered/Not Resolved]
  - Blood pressure decreased [Not Recovered/Not Resolved]
  - Dehydration [Not Recovered/Not Resolved]
  - Asthenia [Not Recovered/Not Resolved]
  - Dizziness [Not Recovered/Not Resolved]
  - Disorientation [Not Recovered/Not Resolved]
  - Drug interaction [Unknown]
